FAERS Safety Report 16087081 (Version 1)
Quarter: 2019Q1

REPORT INFORMATION
  Report Type: Spontaneous
  Country: BR (occurrence: BR)
  Receive Date: 20190319
  Receipt Date: 20190319
  Transmission Date: 20190418
  Serious: Yes (Hospitalization)
  Sender: FDA-Public Use
  Company Number: BR-ANIPHARMA-2019-BR-000015

PATIENT
  Age: 9 Year
  Sex: Female

DRUGS (3)
  1. AMIKACIN. [Suspect]
     Active Substance: AMIKACIN
     Indication: CYSTIC FIBROSIS
  2. OXACILLIN [Suspect]
     Active Substance: OXACILLIN SODIUM
     Indication: CYSTIC FIBROSIS
  3. CEFTAZIDIME. [Suspect]
     Active Substance: CEFTAZIDIME
     Indication: CYSTIC FIBROSIS

REACTIONS (1)
  - Toxic epidermal necrolysis [Recovered/Resolved]
